FAERS Safety Report 13395238 (Version 1)
Quarter: 2017Q2

REPORT INFORMATION
  Report Type: Spontaneous
  Country: US (occurrence: US)
  Receive Date: 20170403
  Receipt Date: 20170403
  Transmission Date: 20170830
  Serious: No
  Sender: FDA-Public Use
  Company Number: US-PFIZER INC-2017137619

PATIENT
  Sex: Male

DRUGS (3)
  1. CETIRIZINE HCL [Concomitant]
     Active Substance: CETIRIZINE HYDROCHLORIDE
     Dosage: 10 MG, AS NEEDED
  2. GENOTROPIN [Suspect]
     Active Substance: SOMATROPIN
     Indication: GROWTH HORMONE DEFICIENCY
     Dosage: 1.6 MG, DAILY
     Route: 058
  3. GENOTROPIN [Suspect]
     Active Substance: SOMATROPIN
     Dosage: 1.8 MG, DAILY
     Route: 058
     Dates: start: 2014

REACTIONS (6)
  - Vitamin D decreased [Unknown]
  - Drug effect incomplete [Unknown]
  - Insulin-like growth factor decreased [Unknown]
  - Drug dose omission [Unknown]
  - Fatigue [Unknown]
  - Vitamin A deficiency [Unknown]
